FAERS Safety Report 6275314-3 (Version None)
Quarter: 2009Q3

REPORT INFORMATION
  Report Type: 
  Country: None (occurrence: None)
  Receive Date: 20090721
  Receipt Date: 20090721
  Transmission Date: 20100115
  Serious: Yes (Hospitalization, Other)
  Sender: FDA-Public Use
  Company Number: B0569312A

PATIENT
  Sex: Female
  Weight: 70 kg

DRUGS (4)
  1. ZINNAT [Suspect]
     Route: 048
  2. ZINNAT [Suspect]
     Indication: SINUSITIS
     Route: 048
     Dates: start: 20090323, end: 20090323
  3. FERRO GLYCINE SULPHATE [Suspect]
     Indication: PREGNANCY
     Route: 048
     Dates: start: 20080913
  4. ELEVIT [Suspect]
     Route: 048
     Dates: start: 20081004

REACTIONS (14)
  - ABDOMINAL PAIN [None]
  - DRUG EXPOSURE DURING PREGNANCY [None]
  - DRUG INTERACTION [None]
  - ERYTHEMA [None]
  - FORMICATION [None]
  - HYPERSENSITIVITY [None]
  - HYPOAESTHESIA [None]
  - HYPOAESTHESIA ORAL [None]
  - LIVE BIRTH [None]
  - NAUSEA [None]
  - PRURITUS [None]
  - RASH GENERALISED [None]
  - SWELLING [None]
  - SWOLLEN TONGUE [None]
